FAERS Safety Report 9362747 (Version 1)
Quarter: 2013Q2

REPORT INFORMATION
  Report Type: Spontaneous
  Country: GB (occurrence: GB)
  Receive Date: 20130623
  Receipt Date: 20130623
  Transmission Date: 20140414
  Serious: Yes (Other)
  Sender: FDA-Public Use
  Company Number: GB-ALLERGAN-1308896US

PATIENT
  Age: 64 Year
  Sex: Female

DRUGS (3)
  1. ALPHAGAN? 0.2% W/V (2 MG/ML) EYE DROPS SOLUTION [Suspect]
     Indication: OPEN ANGLE GLAUCOMA
     Dosage: UNK
  2. XALATAN [Concomitant]
     Indication: OPEN ANGLE GLAUCOMA
  3. COSOPT [Concomitant]
     Indication: OPEN ANGLE GLAUCOMA

REACTIONS (5)
  - Uveitis [Recovered/Resolved]
  - Cataract [Unknown]
  - Intraocular pressure increased [Recovered/Resolved]
  - Conjunctivitis [Recovered/Resolved]
  - Blepharitis [Unknown]
